FAERS Safety Report 24098831 (Version 1)
Quarter: 2024Q3

REPORT INFORMATION
  Report Type: Spontaneous
  Country: US (occurrence: US)
  Receive Date: 20240716
  Receipt Date: 20240716
  Transmission Date: 20241017
  Serious: No
  Sender: NOVO NORDISK
  Company Number: US-NOVOPROD-1110609

PATIENT
  Sex: Female

DRUGS (1)
  1. OZEMPIC [Suspect]
     Active Substance: SEMAGLUTIDE
     Indication: Glucose tolerance impaired
     Dosage: 0.5 MG
     Route: 058

REACTIONS (7)
  - Weight decreased [Unknown]
  - Flatulence [Unknown]
  - Dyspepsia [Unknown]
  - Eructation [Unknown]
  - Diarrhoea [Unknown]
  - Nausea [Recovered/Resolved]
  - Off label use [Unknown]
